FAERS Safety Report 6930134-9 (Version None)
Quarter: 2010Q3

REPORT INFORMATION
  Report Type: 
  Country: None (occurrence: None)
  Receive Date: 20100817
  Receipt Date: 20100817
  Transmission Date: 20110219
  Serious: Yes (Death)
  Sender: FDA-Public Use
  Company Number: None

PATIENT
  Age: 35 Year
  Sex: Male
  Weight: 127.4608 kg

DRUGS (6)
  1. AVANDIA [Suspect]
     Indication: TYPE 2 DIABETES MELLITUS
     Dosage: 1 TABLET DAILY ORALLY
     Route: 048
     Dates: start: 20050901, end: 20070922
  2. ZETIA [Concomitant]
  3. BYETTA [Concomitant]
  4. CADUET [Concomitant]
  5. TRIAMETERENE/HCTZ [Concomitant]
  6. LISINOPRIL [Concomitant]

REACTIONS (3)
  - INFLUENZA LIKE ILLNESS [None]
  - LOSS OF CONSCIOUSNESS [None]
  - MYOCARDIAL INFARCTION [None]
